FAERS Safety Report 11923431 (Version 3)
Quarter: 2016Q1

REPORT INFORMATION
  Report Type: Spontaneous
  Country: RU (occurrence: RU)
  Receive Date: 20160118
  Receipt Date: 20160126
  Transmission Date: 20160526
  Serious: Yes (Death, Life-Threatening, Other)
  Sender: FDA-Public Use
  Company Number: RU-ASTRAZENECA-2016SE03279

PATIENT
  Age: 67 Year
  Weight: 93 kg

DRUGS (11)
  1. HEPARIN [Concomitant]
     Active Substance: HEPARIN SODIUM
     Indication: ACUTE CORONARY SYNDROME
     Route: 041
     Dates: start: 20160108, end: 20160108
  2. ADRENALINE [Concomitant]
     Active Substance: EPINEPHRINE
     Indication: CARDIAC ARREST
     Route: 040
     Dates: start: 20160108, end: 20160108
  3. POTASSIUM CHLORIDE. [Concomitant]
     Active Substance: POTASSIUM CHLORIDE
     Indication: ACUTE CORONARY SYNDROME
     Dosage: ONCE
     Route: 041
     Dates: start: 20160108, end: 20160108
  4. BRILINTA [Suspect]
     Active Substance: TICAGRELOR
     Indication: PERCUTANEOUS CORONARY INTERVENTION
     Route: 048
     Dates: start: 20160105, end: 20160108
  5. EGILOK [Concomitant]
     Active Substance: METOPROLOL TARTRATE
     Indication: ACUTE CORONARY SYNDROME
     Route: 048
     Dates: start: 20160108, end: 20160108
  6. MAGNESIUM SULFATE. [Concomitant]
     Active Substance: MAGNESIUM SULFATE
     Indication: ACUTE CORONARY SYNDROME
     Dosage: ONCE
     Route: 041
     Dates: start: 20160108, end: 20160108
  7. SODIUM CHLORIDE. [Concomitant]
     Active Substance: SODIUM CHLORIDE
     Indication: ACUTE CORONARY SYNDROME
     Dosage: BID
     Route: 041
     Dates: start: 20160108, end: 20160108
  8. ENALAPRIL [Concomitant]
     Active Substance: ENALAPRIL
     Indication: ACUTE CORONARY SYNDROME
     Route: 048
     Dates: start: 20160108, end: 20160108
  9. BRILINTA [Suspect]
     Active Substance: TICAGRELOR
     Indication: ACUTE CORONARY SYNDROME
     Route: 048
     Dates: start: 20160105, end: 20160108
  10. FENTANYL. [Concomitant]
     Active Substance: FENTANYL
     Indication: ACUTE CORONARY SYNDROME
     Route: 040
     Dates: start: 20160108, end: 20160108
  11. KETOROL [Concomitant]
     Active Substance: KETOROLAC TROMETHAMINE
     Indication: ACUTE CORONARY SYNDROME
     Route: 040
     Dates: start: 20160108, end: 20160108

REACTIONS (5)
  - Vascular stent thrombosis [Fatal]
  - Cardiogenic shock [Fatal]
  - Ventricular fibrillation [Unknown]
  - Respiratory arrest [Fatal]
  - Cardiac arrest [Fatal]
